FAERS Safety Report 6213972-X (Version None)
Quarter: 2009Q2

REPORT INFORMATION
  Report Type: 
  Country: None (occurrence: None)
  Receive Date: 20090601
  Receipt Date: 20090601
  Transmission Date: 20091009
  Serious: Yes (Life-Threatening, Hospitalization, Disabling, Other)
  Sender: FDA-Public Use
  Company Number: None

PATIENT
  Age: 79 Year
  Sex: Female
  Weight: 62.5964 kg

DRUGS (1)
  1. RITUXAN [Suspect]
     Indication: CHRONIC LYMPHOCYTIC LEUKAEMIA
     Dates: start: 20090409, end: 20090409

REACTIONS (7)
  - ABASIA [None]
  - HERPES ZOSTER [None]
  - INFUSION RELATED REACTION [None]
  - MUSCLE DISORDER [None]
  - POST HERPETIC NEURALGIA [None]
  - URINARY TRACT INFECTION [None]
  - VISUAL ACUITY REDUCED [None]
